FAERS Safety Report 5329917-0 (Version None)
Quarter: 2007Q2

REPORT INFORMATION
  Report Type: 
  Country: None (occurrence: None)
  Receive Date: 20070521
  Receipt Date: 20070514
  Transmission Date: 20071010
  Serious: Yes (Death, Life-Threatening, Hospitalization)
  Sender: FDA-Public Use
  Company Number: FR-JNJFOC-20070503205

PATIENT
  Age: 73 Year
  Sex: Female

DRUGS (2)
  1. CAELYX [Suspect]
     Route: 042
  2. CAELYX [Suspect]
     Indication: OVARIAN NEOPLASM
     Route: 042

REACTIONS (4)
  - BONE MARROW FAILURE [None]
  - HYPOXIA [None]
  - INTERSTITIAL LUNG DISEASE [None]
  - PNEUMONIA [None]
